FAERS Safety Report 11965331 (Version 1)
Quarter: 2016Q1

REPORT INFORMATION
  Report Type: Spontaneous
  Country: FR (occurrence: FR)
  Receive Date: 20160127
  Receipt Date: 20160127
  Transmission Date: 20160526
  Serious: Yes (Hospitalization)
  Sender: FDA-Public Use
  Company Number: FR-ASTRAZENECA-2016SE07572

PATIENT
  Age: 30272 Day
  Sex: Male

DRUGS (19)
  1. ZOLADEX [Suspect]
     Active Substance: GOSERELIN ACETATE
     Route: 058
     Dates: start: 20150924, end: 20151017
  2. IPRATROPIUM BROMIDE\FENOTEROL HYDROBROMIDE [Concomitant]
     Active Substance: FENOTEROL HYDROBROMIDE\IPRATROPIUM BROMIDE
  3. ALLOPURINOL. [Suspect]
     Active Substance: ALLOPURINOL
     Indication: GOUT
     Route: 048
     Dates: start: 201409, end: 201509
  4. COLCHIMAX [Suspect]
     Active Substance: COLCHICINE\DICYCLOMINE HYDROCHLORIDE
     Dosage: 3 DF THE FIRST DAY
     Route: 048
  5. COLCHIMAX [Suspect]
     Active Substance: COLCHICINE\DICYCLOMINE HYDROCHLORIDE
     Dosage: 1 DF THE THIRD DAY
     Route: 048
     Dates: end: 201509
  6. NICORANDIL [Concomitant]
     Active Substance: NICORANDIL
     Route: 048
  7. ZOLADEX [Suspect]
     Active Substance: GOSERELIN ACETATE
     Route: 058
     Dates: start: 201503
  8. ALLOPURINOL. [Suspect]
     Active Substance: ALLOPURINOL
     Indication: GOUT
     Route: 048
     Dates: end: 20151001
  9. PLAVIX [Concomitant]
     Active Substance: CLOPIDOGREL BISULFATE
     Route: 048
  10. FUROSEMIDE. [Concomitant]
     Active Substance: FUROSEMIDE
     Route: 048
  11. COLCHIMAX [Suspect]
     Active Substance: COLCHICINE\DICYCLOMINE HYDROCHLORIDE
     Route: 048
     Dates: end: 20151001
  12. AMLODIPINE [Concomitant]
     Active Substance: AMLODIPINE BESYLATE
     Dosage: 10 MG IN THE EVENING
     Route: 048
  13. ATORVASTATIN [Concomitant]
     Active Substance: ATORVASTATIN
     Dosage: 40 MG IN THE EVENING
     Route: 048
  14. ADENURIC [Concomitant]
     Active Substance: FEBUXOSTAT
     Route: 048
  15. ZOLADEX [Suspect]
     Active Substance: GOSERELIN ACETATE
     Route: 058
     Dates: start: 201506
  16. COLCHIMAX [Suspect]
     Active Substance: COLCHICINE\DICYCLOMINE HYDROCHLORIDE
     Dosage: 2 DF THE SECOND DAY
     Route: 048
  17. BISOPROLOL [Concomitant]
     Active Substance: BISOPROLOL
     Route: 048
  18. POTASSIUM [Concomitant]
     Active Substance: POTASSIUM
     Route: 048
  19. PERINDOPRIL [Concomitant]
     Active Substance: PERINDOPRIL
     Route: 048

REACTIONS (2)
  - Drug reaction with eosinophilia and systemic symptoms [Recovered/Resolved]
  - Diarrhoea [Unknown]

NARRATIVE: CASE EVENT DATE: 20150924
